FAERS Safety Report 13801698 (Version 2)
Quarter: 2017Q3

REPORT INFORMATION
  Report Type: Report from Study
  Country: US (occurrence: US)
  Receive Date: 20170727
  Receipt Date: 20170731
  Transmission Date: 20171127
  Serious: Yes (Death)
  Sender: FDA-Public Use
  Company Number: US-JNJFOC-20170626597

PATIENT
  Age: 97 Year
  Sex: Male

DRUGS (11)
  1. CLARITIN [Concomitant]
     Active Substance: LORATADINE
  2. MAG-OX [Concomitant]
     Active Substance: MAGNESIUM OXIDE
  3. FISH OIL W/TOCOPHEROL [Concomitant]
  4. MULTIVITAMINS [Concomitant]
     Active Substance: VITAMINS
  5. CITRUCEL [Concomitant]
     Active Substance: METHYLCELLULOSE (4000 MPA.S)
  6. NIFEDIPINE. [Concomitant]
     Active Substance: NIFEDIPINE
  7. ATIVAN [Concomitant]
     Active Substance: LORAZEPAM
  8. IMBRUVICA [Suspect]
     Active Substance: IBRUTINIB
     Indication: CHRONIC LYMPHOCYTIC LEUKAEMIA
     Route: 048
     Dates: start: 20170209, end: 20170607
  9. FINASTERIDE. [Concomitant]
     Active Substance: FINASTERIDE
  10. SIMVASTATIN. [Concomitant]
     Active Substance: SIMVASTATIN
  11. SINGULAIR [Concomitant]
     Active Substance: MONTELUKAST SODIUM

REACTIONS (4)
  - Product use issue [Unknown]
  - Disease progression [Fatal]
  - Off label use [Unknown]
  - Pancytopenia [Fatal]

NARRATIVE: CASE EVENT DATE: 20170209
